FAERS Safety Report 16558105 (Version 1)
Quarter: 2019Q3

REPORT INFORMATION
  Report Type: Spontaneous
  Country: US (occurrence: US)
  Receive Date: 20190711
  Receipt Date: 20190711
  Transmission Date: 20191004
  Serious: No
  Sender: FDA-Public Use
  Company Number: US-APOTEX-2019AP008238

PATIENT
  Sex: Male

DRUGS (2)
  1. ATORVASTATIN CALCIUM. [Suspect]
     Active Substance: ATORVASTATIN CALCIUM
     Indication: PRODUCT USED FOR UNKNOWN INDICATION
     Dosage: UNK
     Route: 065
     Dates: start: 201803
  2. ATORVASTATIN CALCIUM. [Suspect]
     Active Substance: ATORVASTATIN CALCIUM
     Dosage: UNK
     Route: 065
     Dates: start: 20181120, end: 20181210

REACTIONS (8)
  - Oral mucosal discolouration [Recovered/Resolved]
  - Product taste abnormal [Recovered/Resolved]
  - Lip discolouration [Recovered/Resolved]
  - Loss of personal independence in daily activities [Unknown]
  - Product quality issue [Unknown]
  - Discomfort [Unknown]
  - Emotional distress [Unknown]
  - Exposure to toxic agent [Unknown]

NARRATIVE: CASE EVENT DATE: 20181120
